FAERS Safety Report 8607446-6 (Version None)
Quarter: 2012Q3

REPORT INFORMATION
  Report Type: 
  Country: None (occurrence: None)
  Receive Date: 20120809
  Receipt Date: 20120809
  Transmission Date: 20120928
  Serious: Yes (Life-Threatening, Hospitalization)
  Sender: FDA-Public Use
  Company Number: None

PATIENT
  Age: 68 Year
  Sex: Female
  Weight: 112.7 kg

DRUGS (2)
  1. OXYCODONE HCL [Suspect]
     Dosage: 5-10 MG  BID   PO
     Route: 048
     Dates: start: 20120501, end: 20120509
  2. WARFARIN SODIUM [Suspect]
     Dosage: EVERY DAY PO
     Route: 048
     Dates: start: 20050302, end: 20120509

REACTIONS (11)
  - FALL [None]
  - HYPONATRAEMIA [None]
  - RETROPERITONEAL HAEMORRHAGE [None]
  - RENAL FAILURE [None]
  - CONSTIPATION [None]
  - DIZZINESS [None]
  - CONFUSIONAL STATE [None]
  - HYPOTENSION [None]
  - HYPERKALAEMIA [None]
  - INTERNATIONAL NORMALISED RATIO INCREASED [None]
  - HAEMORRHAGE [None]
